FAERS Safety Report 7619167-7 (Version None)
Quarter: 2011Q3

REPORT INFORMATION
  Report Type: 
  Country: None (occurrence: None)
  Receive Date: 20110718
  Receipt Date: 20110705
  Transmission Date: 20111222
  Serious: Yes (Other)
  Sender: FDA-Public Use
  Company Number: PHHY2010CA42815

PATIENT
  Sex: Female

DRUGS (2)
  1. ZOLEDRONOC ACID [Suspect]
     Dosage: 5, MG
     Route: 042
     Dates: start: 20100706
  2. ZOLEDRONOC ACID [Suspect]
     Indication: OSTEOPOROSIS
     Dosage: 5, MG
     Dates: start: 20090624

REACTIONS (5)
  - GASTROENTERITIS [None]
  - WEIGHT INCREASED [None]
  - LIGAMENT SPRAIN [None]
  - THERMAL BURN [None]
  - DIARRHOEA [None]
